FAERS Safety Report 13338044 (Version 1)
Quarter: 2017Q1

REPORT INFORMATION
  Report Type: Spontaneous
  Country: US (occurrence: US)
  Receive Date: 20170315
  Receipt Date: 20170315
  Transmission Date: 20170428
  Serious: Yes (Other)
  Sender: FDA-Public Use
  Company Number: US-TEVA-750079USA

PATIENT
  Age: 25 Year
  Sex: Female

DRUGS (3)
  1. COPAXONE [Suspect]
     Active Substance: GLATIRAMER ACETATE
     Indication: MULTIPLE SCLEROSIS
     Dosage: UNKNOWN FORM STRENGTH
  2. VITAMIN D [Concomitant]
     Active Substance: CHOLECALCIFEROL
  3. AVONEX [Concomitant]
     Active Substance: INTERFERON BETA-1A

REACTIONS (6)
  - Multiple sclerosis relapse [Unknown]
  - Gastric disorder [Unknown]
  - Myocardial infarction [Unknown]
  - Adverse event [Unknown]
  - Pain in extremity [Recovering/Resolving]
  - Rash [Unknown]
